FAERS Safety Report 6531221-X (Version None)
Quarter: 2010Q1

REPORT INFORMATION
  Report Type: 
  Country: None (occurrence: None)
  Receive Date: 20100108
  Receipt Date: 20100104
  Transmission Date: 20100710
  Serious: Yes (Hospitalization)
  Sender: FDA-Public Use
  Company Number: PHHY2010MX00583

PATIENT
  Age: 72 Year
  Sex: Male

DRUGS (11)
  1. RASILEZ [Suspect]
     Indication: HYPERTENSION
     Dosage: 1 TABLET (150 MG) PER DAY
  2. TELMISARTAN [Concomitant]
     Dosage: UNK
     Route: 048
  3. METOPROLOL [Concomitant]
     Dosage: UNK
     Route: 048
  4. NIFEDIPINE [Concomitant]
     Dosage: UNK
     Route: 048
  5. PROXACIN [Concomitant]
     Dosage: UNK
     Route: 048
  6. JANUVIA [Concomitant]
     Dosage: UNK
     Route: 048
  7. INSULIN [Concomitant]
     Dosage: UNK
     Route: 062
  8. RANISEN [Concomitant]
     Dosage: UNK
     Route: 048
  9. VITAMIN B COMPLEX CAP [Concomitant]
     Dosage: UNK
     Route: 048
  10. AMBROXOL [Concomitant]
     Dosage: UNK
     Route: 048
  11. SENOSIDES [Concomitant]
     Dosage: UNK
     Route: 054

REACTIONS (1)
  - CEREBRAL INFARCTION [None]
